FAERS Safety Report 4439480-4 (Version None)
Quarter: 2004Q3

REPORT INFORMATION
  Report Type: 
  Country: None (occurrence: None)
  Receive Date: 20040901
  Receipt Date: 20040901
  Transmission Date: 20050211
  Serious: Yes (Hospitalization)
  Sender: FDA-Public Use
  Company Number: None

PATIENT
  Sex: Male
  Weight: 72.5755 kg

DRUGS (4)
  1. COUMADIN [Suspect]
     Indication: ANTICOAGULANT THERAPY
     Dosage: PO, [PRIOR TO ADMISSION]
     Route: 048
  2. TENORMIN [Concomitant]
  3. PROCRIT [Concomitant]
  4. PERCOCET [Concomitant]

REACTIONS (1)
  - HAEMATEMESIS [None]
